FAERS Safety Report 20379468 (Version 1)
Quarter: 2022Q1

REPORT INFORMATION
  Report Type: Report from Study
  Country: ES (occurrence: ES)
  Receive Date: 20220126
  Receipt Date: 20220126
  Transmission Date: 20220423
  Serious: Yes (Death)
  Sender: FDA-Public Use
  Company Number: ES-KARYOPHARM-2022KPT000090

PATIENT
  Age: 54 Year
  Sex: Male

DRUGS (2)
  1. SELINEXOR [Suspect]
     Active Substance: SELINEXOR
     Indication: Sarcoma
     Dosage: UNK
     Route: 048
     Dates: start: 20210524, end: 20211101
  2. ACETAMINOPHEN [Concomitant]
     Active Substance: ACETAMINOPHEN
     Dosage: 600 MG

REACTIONS (1)
  - Sarcoma [Fatal]

NARRATIVE: CASE EVENT DATE: 20210101
